FAERS Safety Report 16181868 (Version 4)
Quarter: 2020Q1

REPORT INFORMATION
  Report Type: Spontaneous
  Country: ES (occurrence: ES)
  Receive Date: 20190410
  Receipt Date: 20200210
  Transmission Date: 20200409
  Serious: Yes (Life-Threatening, Hospitalization, Other)
  Sender: FDA-Public Use
  Company Number: ES-GILEAD-2019-0401452

PATIENT
  Age: 42 Year
  Sex: Male

DRUGS (20)
  1. DESCOVY [Suspect]
     Active Substance: EMTRICITABINE\TENOFOVIR ALAFENAMIDE FUMARATE
     Indication: HIV INFECTION
     Dosage: UNK
     Route: 065
     Dates: start: 20190110
  2. DOLUTEGRAVIR [Concomitant]
     Active Substance: DOLUTEGRAVIR
     Indication: PRODUCT USED FOR UNKNOWN INDICATION
  3. RITONAVIR. [Concomitant]
     Active Substance: RITONAVIR
     Dosage: UNK
     Dates: start: 2005, end: 2007
  4. COCAINE [Concomitant]
     Active Substance: COCAINE
     Dosage: UNK
     Route: 042
  5. HEROIN [Concomitant]
     Active Substance: DIAMORPHINE
     Dosage: UNK
     Route: 042
  6. HEROIN [Concomitant]
     Active Substance: DIAMORPHINE
     Dosage: UNK
     Route: 042
  7. INTERFERON;RIBAVIRIN [Concomitant]
     Dosage: UNK
     Dates: start: 2011
  8. SAQUINAVIR [Concomitant]
     Active Substance: SAQUINAVIR
     Dosage: UNK
     Dates: start: 2005, end: 2012
  9. ZIDOVUDINE+LAMIVUDINE [Concomitant]
     Active Substance: LAMIVUDINE\ZIDOVUDINE
     Dosage: UNK
     Dates: start: 1999, end: 2005
  10. ABACAVIR. [Concomitant]
     Active Substance: ABACAVIR
     Dosage: UNK
     Dates: start: 2002, end: 2005
  11. TRUVADA [Concomitant]
     Active Substance: EMTRICITABINE\TENOFOVIR DISOPROXIL FUMARATE
     Indication: PRODUCT USED FOR UNKNOWN INDICATION
     Dosage: UNK
     Route: 065
     Dates: start: 201210
  12. TRUVADA [Concomitant]
     Active Substance: EMTRICITABINE\TENOFOVIR DISOPROXIL FUMARATE
     Dosage: UNK
     Route: 065
     Dates: start: 2005, end: 2015
  13. DARUNAVIR;RITONAVIR [Concomitant]
     Active Substance: DARUNAVIR\RITONAVIR
     Dosage: UNK
     Dates: start: 2010
  14. COCAINE [Concomitant]
     Active Substance: COCAINE
     Dosage: UNK
     Route: 042
  15. HEROIN [Concomitant]
     Active Substance: DIAMORPHINE
     Indication: DRUG ABUSE
     Dosage: UNK
     Route: 042
  16. SYMTUZA [Suspect]
     Active Substance: COBICISTAT\DARUNAVIR\EMTRICITABINE\TENOFOVIR ALAFENAMIDE
     Indication: HIV INFECTION
     Dosage: UNK, 1/24 HOURS
     Route: 048
     Dates: start: 20181207, end: 20190205
  17. DESCOVY [Suspect]
     Active Substance: EMTRICITABINE\TENOFOVIR ALAFENAMIDE FUMARATE
     Indication: PRODUCT USED FOR UNKNOWN INDICATION
  18. COCAINE [Concomitant]
     Active Substance: COCAINE
     Indication: DRUG ABUSE
     Dosage: UNK
     Route: 042
  19. HEROIN [Concomitant]
     Active Substance: DIAMORPHINE
     Dosage: UNK
     Route: 042
  20. COCAINE [Concomitant]
     Active Substance: COCAINE
     Dosage: UNK
     Route: 042

REACTIONS (6)
  - Malnutrition [Unknown]
  - Emphysema [Unknown]
  - Psychopathic personality [Unknown]
  - Immune reconstitution inflammatory syndrome [Recovered/Resolved]
  - Cerebral toxoplasmosis [Unknown]
  - Oral candidiasis [Unknown]

NARRATIVE: CASE EVENT DATE: 20190110
